FAERS Safety Report 13037618 (Version 1)
Quarter: 2016Q4

REPORT INFORMATION
  Report Type: Spontaneous
  Country: US (occurrence: US)
  Receive Date: 20161217
  Receipt Date: 20161217
  Transmission Date: 20170207
  Serious: No
  Sender: FDA-Public Use
  Company Number: US-009507513-1611USA011157

PATIENT
  Sex: Male

DRUGS (4)
  1. HYDROCHLOROT [Concomitant]
     Active Substance: HYDROCHLOROTHIAZIDE
     Dosage: UNK
  2. TESSALON [Concomitant]
     Active Substance: BENZONATATE
     Dosage: UNK
  3. INTRON A [Suspect]
     Active Substance: INTERFERON ALFA-2B
     Indication: ONCOLOGIC COMPLICATION
     Dosage: 50 MG, QW
     Route: 058
     Dates: start: 20161020
  4. GUANFACINE HYDROCHLORIDE. [Concomitant]
     Active Substance: GUANFACINE HYDROCHLORIDE
     Dosage: UNK

REACTIONS (2)
  - Influenza like illness [Unknown]
  - Cough [Unknown]

NARRATIVE: CASE EVENT DATE: 2016
